FAERS Safety Report 10470417 (Version 2)
Quarter: 2014Q3

REPORT INFORMATION
  Report Type: Other
  Country: IT (occurrence: IT)
  Receive Date: 20140923
  Receipt Date: 20140923
  Transmission Date: 20150326
  Serious: Yes (Other)
  Sender: FDA-Public Use
  Company Number: IT-MYLANLABS-2014M1002528

PATIENT

DRUGS (2)
  1. IBUPROFEN. [Suspect]
     Active Substance: IBUPROFEN
     Indication: DIVERTICULITIS
     Dosage: 200 MG, PRN
     Route: 048
     Dates: start: 20130601, end: 20131207
  2. KETOPROFEN. [Suspect]
     Active Substance: KETOPROFEN
     Indication: DIVERTICULITIS
     Dosage: 50 MG, PRN
     Route: 048
     Dates: start: 20130601, end: 20131207

REACTIONS (2)
  - Haematochezia [Recovered/Resolved]
  - Drug abuse [Recovered/Resolved]

NARRATIVE: CASE EVENT DATE: 20131207
